FAERS Safety Report 22298552 (Version 1)
Quarter: 2023Q2

REPORT INFORMATION
  Report Type: Spontaneous
  Country: IT (occurrence: IT)
  Receive Date: 20230509
  Receipt Date: 20230509
  Transmission Date: 20230722
  Serious: Yes (Hospitalization, Other)
  Sender: FDA-Public Use
  Company Number: IT-ORPHANEU-2022007401

PATIENT

DRUGS (8)
  1. CARBAGLU [Suspect]
     Active Substance: CARGLUMIC ACID
     Indication: Methylmalonic acidaemia
     Dosage: 45 MG/KG/DAY
     Dates: start: 2018, end: 2018
  2. CARBAGLU [Suspect]
     Active Substance: CARGLUMIC ACID
     Dosage: 20 MG/KG/DAY
     Dates: start: 2018, end: 2018
  3. CARBAGLU [Suspect]
     Active Substance: CARGLUMIC ACID
     Dosage: 10 MG/KG/DAY
     Dates: start: 2018, end: 2018
  4. CARBAGLU [Suspect]
     Active Substance: CARGLUMIC ACID
     Dosage: 20 MG/KG/DAY
     Dates: start: 2018
  5. ARGININE [Concomitant]
     Active Substance: ARGININE
     Indication: Product used for unknown indication
     Dosage: 80MG/KG/DAY
     Route: 048
  6. CARNITINE [Concomitant]
     Active Substance: CARNITINE
     Indication: Product used for unknown indication
     Dosage: 100 MG/KG/DAY
  7. SODIUM BICARBONATE [Concomitant]
     Active Substance: SODIUM BICARBONATE
     Indication: Product used for unknown indication
  8. VITAMINS NOS [Concomitant]
     Active Substance: VITAMINS
     Indication: Product used for unknown indication

REACTIONS (4)
  - Hyperammonaemia [Recovering/Resolving]
  - Feeding disorder [Recovering/Resolving]
  - Hypokalaemia [Recovering/Resolving]
  - Vomiting [Recovering/Resolving]

NARRATIVE: CASE EVENT DATE: 20180101
